FAERS Safety Report 9657698 (Version 1)
Quarter: 2013Q4

REPORT INFORMATION
  Report Type: Spontaneous
  Country: KR (occurrence: KR)
  Receive Date: 20131030
  Receipt Date: 20131030
  Transmission Date: 20140711
  Serious: Yes (Hospitalization)
  Sender: FDA-Public Use
  Company Number: KR-BAXTER-2013BAX041894

PATIENT
  Age: 64 Year
  Sex: Male
  Weight: 66 kg

DRUGS (8)
  1. EXTRANEAL [Suspect]
     Indication: RENAL FAILURE CHRONIC
     Route: 033
     Dates: start: 20050530
  2. PHYSIONEAL 1.5% [Suspect]
     Indication: RENAL FAILURE CHRONIC
     Route: 033
     Dates: end: 20131001
  3. PHYSIONEAL 1.5% [Suspect]
     Route: 033
     Dates: start: 20131001, end: 20131020
  4. PHYSIONEAL 1.5% [Suspect]
     Route: 033
     Dates: start: 20131021
  5. PHYSIONEAL 2.5% [Suspect]
     Indication: RENAL FAILURE CHRONIC
     Route: 033
     Dates: end: 20131001
  6. PHYSIONEAL 2.5% [Suspect]
     Dates: start: 20131021
  7. PHYSIONEAL 4.25% [Suspect]
     Indication: RENAL FAILURE CHRONIC
     Route: 033
     Dates: end: 20131001
  8. PHYSIONEAL 4.25% [Suspect]
     Dates: start: 20131021

REACTIONS (3)
  - Weight decreased [Recovered/Resolved]
  - Decreased appetite [Recovered/Resolved]
  - Dyspnoea [Recovering/Resolving]
